FAERS Safety Report 6260056-0 (Version None)
Quarter: 2009Q3

REPORT INFORMATION
  Report Type: 
  Country: None (occurrence: None)
  Receive Date: 20090708
  Receipt Date: 20090617
  Transmission Date: 20100115
  Serious: Yes (Death, Other)
  Sender: FDA-Public Use
  Company Number: NZ-AVENTIS-200916555GDDC

PATIENT
  Age: 64 Year
  Sex: Female

DRUGS (5)
  1. LEFLUNOMIDE [Suspect]
     Route: 048
     Dates: end: 20020701
  2. METHOTREXATE [Suspect]
     Route: 048
     Dates: end: 20020701
  3. KETOPROFEN [Suspect]
     Route: 048
     Dates: end: 20020701
  4. TRIAMCINOLONE [Suspect]
     Dosage: DOSE: UNK
     Dates: start: 20020601, end: 20020601
  5. HYDROXYCHLOROQUINE SULFATE [Concomitant]
     Route: 048
     Dates: end: 20020701

REACTIONS (5)
  - ARTHRITIS [None]
  - MULTI-ORGAN FAILURE [None]
  - SEPSIS [None]
  - STREPTOCOCCAL INFECTION [None]
  - VOMITING [None]
